FAERS Safety Report 4491486-5 (Version None)
Quarter: 2004Q4

REPORT INFORMATION
  Report Type: 
  Country: None (occurrence: None)
  Receive Date: 20041102
  Receipt Date: 20041101
  Transmission Date: 20050328
  Serious: Yes (Congenital Anomaly, Other)
  Sender: FDA-Public Use
  Company Number: 04-11-1500

PATIENT
  Age: 35 Year
  Sex: Female

DRUGS (2)
  1. METFORMIN HCL [Suspect]
     Indication: INFERTILITY
     Dosage: TRANSPLACENTAL
     Route: 064
     Dates: start: 20040401
  2. CLOMIPHENE ORALS [Concomitant]

REACTIONS (3)
  - ANENCEPHALY [None]
  - CONGENITAL ANOMALY [None]
  - DRUG EXPOSURE DURING PREGNANCY [None]
